FAERS Safety Report 6538018-5 (Version None)
Quarter: 2010Q1

REPORT INFORMATION
  Report Type: 
  Country: None (occurrence: None)
  Receive Date: 20100112
  Receipt Date: 20100112
  Transmission Date: 20100710
  Serious: Yes (Disabling, Other)
  Sender: FDA-Public Use
  Company Number: None

PATIENT
  Age: 59 Year
  Sex: Female
  Weight: 90.9 kg

DRUGS (4)
  1. CRESTOR [Suspect]
     Indication: BLOOD CHOLESTEROL INCREASED
     Dosage: 5MG  1 PILL EACH DAY ORALLY
     Route: 048
     Dates: start: 20090518
  2. SYNTHROID [Concomitant]
  3. MICARDIS [Concomitant]
  4. ESTROGEN [Concomitant]

REACTIONS (7)
  - CHROMATURIA [None]
  - DYSSTASIA [None]
  - MUSCULAR WEAKNESS [None]
  - MYALGIA [None]
  - PAIN [None]
  - PAIN IN EXTREMITY [None]
  - PROTEIN URINE PRESENT [None]
